FAERS Safety Report 15133301 (Version 2)
Quarter: 2018Q3

REPORT INFORMATION
  Report Type: Spontaneous
  Country: JP (occurrence: JP)
  Receive Date: 20180712
  Receipt Date: 20180912
  Transmission Date: 20181010
  Serious: Yes (Hospitalization, Disabling, Other)
  Sender: FDA-Public Use
  Company Number: JP-REGENERON PHARMACEUTICALS, INC.-2018-29212

PATIENT

DRUGS (3)
  1. EYLEA [Suspect]
     Active Substance: AFLIBERCEPT
     Indication: RETINAL VEIN OCCLUSION
     Dosage: 0.05 ML, ONCE
     Route: 031
     Dates: start: 20180410, end: 20180410
  2. CRAVIT [Concomitant]
     Active Substance: LEVOFLOXACIN
     Indication: INFECTION PROPHYLAXIS
     Dosage: RIGHT EYE
     Route: 047
     Dates: start: 20180407, end: 20180413
  3. CRAVIT [Concomitant]
     Active Substance: LEVOFLOXACIN
     Dosage: RIGHT EYE
     Route: 047
     Dates: start: 20180710, end: 20180716

REACTIONS (6)
  - Cerebral small vessel ischaemic disease [Unknown]
  - Aphasia [Unknown]
  - Cognitive disorder [Unknown]
  - Cerebral haemorrhage [Recovered/Resolved with Sequelae]
  - Memory impairment [Unknown]
  - Cerebral infarction [Unknown]

NARRATIVE: CASE EVENT DATE: 20180513
